FAERS Safety Report 10949639 (Version 1)
Quarter: 2015Q1

REPORT INFORMATION
  Report Type: Spontaneous
  Country: DK (occurrence: DK)
  Receive Date: 20150324
  Receipt Date: 20150324
  Transmission Date: 20150721
  Serious: Yes (Disabling)
  Sender: FDA-Public Use
  Company Number: DK-TEVA-547802ISR

PATIENT
  Age: 50 Year
  Sex: Male

DRUGS (7)
  1. ENTOCORT [Concomitant]
     Active Substance: BUDESONIDE
     Indication: COLITIS ULCERATIVE
     Dates: start: 201401, end: 201401
  2. PREDNISOLON [Suspect]
     Active Substance: PREDNISOLONE
     Indication: COLITIS ULCERATIVE
     Dosage: PREDNOSOLON, 75 MG DAILY IN 10 DAYS, FOLLOWING A PHASE OUT
     Dates: start: 200505
  3. IMUREL [Concomitant]
     Active Substance: AZATHIOPRINE SODIUM
     Indication: COLITIS ULCERATIVE
  4. SALAZOPYRIN [Concomitant]
     Active Substance: SULFASALAZINE
     Indication: COLITIS ULCERATIVE
  5. PREDNISOLON [Suspect]
     Active Substance: PREDNISOLONE
     Indication: COLITIS ULCERATIVE
     Dosage: PREDNOSOLON, 75 MG DAILY IN 10 DAYS, FOLLOWING A PHASE OUT
     Dates: start: 200707
  6. PENTASA [Concomitant]
     Active Substance: MESALAMINE
     Indication: COLITIS ULCERATIVE
  7. METHOTREXATE (METHOTREXATE SODIUM) [Suspect]
     Active Substance: METHOTREXATE SODIUM
     Indication: COLITIS ULCERATIVE
     Dosage: TREATMENT DURATION 10 DAYS, 75 MG DAILY, PHASE OUT OVER A PERIOD OF 3 WEEKS
     Route: 048
     Dates: start: 2007, end: 2009

REACTIONS (8)
  - Intervertebral disc degeneration [Unknown]
  - Neck pain [Not Recovered/Not Resolved]
  - Chest pain [Not Recovered/Not Resolved]
  - Spinal compression fracture [Recovered/Resolved]
  - Spinal compression fracture [Unknown]
  - Spondylitis [Unknown]
  - Back pain [Not Recovered/Not Resolved]
  - Osteoporosis [Not Recovered/Not Resolved]

NARRATIVE: CASE EVENT DATE: 200712
